FAERS Safety Report 8141975-7 (Version None)
Quarter: 2012Q1

REPORT INFORMATION
  Report Type: 
  Country: None (occurrence: None)
  Receive Date: 20120216
  Receipt Date: 20120215
  Transmission Date: 20120608
  Serious: No
  Sender: FDA-Public Use
  Company Number: US-BAYER-2012-015614

PATIENT
  Sex: Female

DRUGS (1)
  1. BETASERON [Suspect]
     Dosage: 0.3 MG, QOD
     Route: 058
     Dates: start: 20081030

REACTIONS (2)
  - INJECTION SITE URTICARIA [None]
  - INJECTION SITE PAIN [None]
